FAERS Safety Report 8320466-4 (Version None)
Quarter: 2012Q2

REPORT INFORMATION
  Report Type: 
  Country: None (occurrence: None)
  Receive Date: 20120426
  Receipt Date: 20120426
  Transmission Date: 20120825
  Serious: Yes (Other)
  Sender: FDA-Public Use
  Company Number: None

PATIENT
  Age: 47 Year
  Sex: Male
  Weight: 54.4316 kg

DRUGS (1)
  1. QUETIAPINE FUMARATE [Suspect]
     Indication: BIPOLAR DISORDER
     Dosage: 3 TABLETS BEDTIME ORAL
     Route: 048
     Dates: start: 20110501, end: 20120410

REACTIONS (4)
  - GAIT DISTURBANCE [None]
  - FALL [None]
  - MUSCLE SPASMS [None]
  - MUSCLE TWITCHING [None]
